FAERS Safety Report 24196348 (Version 1)
Quarter: 2024Q3

REPORT INFORMATION
  Report Type: Report from Study
  Country: US (occurrence: US)
  Receive Date: 20240809
  Receipt Date: 20240809
  Transmission Date: 20241016
  Serious: Yes (Hospitalization, Other)
  Sender: ABBVIE
  Company Number: US-ABBVIE-5865919

PATIENT
  Sex: Male
  Weight: 50.8 kg

DRUGS (2)
  1. SKYRIZI [Suspect]
     Active Substance: RISANKIZUMAB-RZAA
     Indication: Crohn^s disease
     Route: 058
     Dates: start: 2023, end: 202404
  2. SKYRIZI [Suspect]
     Active Substance: RISANKIZUMAB-RZAA
     Route: 058
     Dates: start: 202407

REACTIONS (13)
  - Abdominal pain upper [Recovered/Resolved]
  - Chronic obstructive pulmonary disease [Recovering/Resolving]
  - Sepsis [Recovered/Resolved]
  - Small intestinal perforation [Recovered/Resolved]
  - Gastrointestinal disorder [Unknown]
  - Lethargy [Recovered/Resolved]
  - Tremor [Recovered/Resolved]
  - Micturition disorder [Recovered/Resolved]
  - Clostridium difficile infection [Recovering/Resolving]
  - Arteriogram carotid abnormal [Unknown]
  - Lethargy [Recovered/Resolved]
  - Transient ischaemic attack [Unknown]
  - Muscular weakness [Recovered/Resolved]

NARRATIVE: CASE EVENT DATE: 20230101
